FAERS Safety Report 10655052 (Version 2)
Quarter: 2014Q4

REPORT INFORMATION
  Report Type: Spontaneous
  Country: DE (occurrence: DE)
  Receive Date: 20141216
  Receipt Date: 20141226
  Transmission Date: 20150529
  Serious: Yes (Hospitalization)
  Sender: FDA-Public Use
  Company Number: DE-OTSUKA-US-2014-14519

PATIENT

DRUGS (8)
  1. DACOGEN [Suspect]
     Active Substance: DECITABINE
     Indication: ACUTE MYELOID LEUKAEMIA
     Dosage: 35 MG MILLIGRAM(S), UNKNOWN
     Route: 065
     Dates: start: 20141201, end: 20141205
  2. ALLOPURINOL. [Concomitant]
     Active Substance: ALLOPURINOL
     Indication: PROPHYLAXIS
     Dosage: 150 MG MILLIGRAM(S), UNKNOWN
     Route: 048
     Dates: start: 20141203
  3. MOXONIDINE [Concomitant]
     Active Substance: MOXONIDINE
     Indication: HYPOTENSION
     Dosage: 0.3 MG MILLIGRAM(S), UNKNOWN
     Route: 048
     Dates: start: 20141204, end: 20141208
  4. BELOC-ZOK MITE [Concomitant]
     Active Substance: METOPROLOL SUCCINATE
     Indication: HYPOTENSION
     Dosage: 47.5 MG MILLIGRAM(S), UNKNOWN
     Route: 048
     Dates: start: 20141110
  5. VALPROIC ACID. [Suspect]
     Active Substance: VALPROIC ACID
     Indication: ACUTE MYELOID LEUKAEMIA
     Dosage: 1000 MG MILLIGRAM(S), UNKNOWN
     Route: 065
     Dates: start: 20141201, end: 20141205
  6. AMLODIPINE [Concomitant]
     Active Substance: AMLODIPINE BESYLATE
     Indication: HYPOTENSION
     Dosage: 5 MG MILLIGRAM(S), UNKNOWN
     Route: 048
     Dates: start: 20141110, end: 20141208
  7. SIMVASTATIN. [Concomitant]
     Active Substance: SIMVASTATIN
     Indication: HYPERCHOLESTEROLAEMIA
     Dosage: 30 MG MILLIGRAM(S), UNKNOWN
     Route: 048
     Dates: start: 20141110
  8. ATRA [Suspect]
     Active Substance: TRETINOIN
     Indication: ACUTE MYELOID LEUKAEMIA
     Dosage: 90 MG MILLIGRAM(S), UNKNOWN
     Route: 065
     Dates: start: 20141206

REACTIONS (2)
  - Dizziness [Not Recovered/Not Resolved]
  - Syncope [Not Recovered/Not Resolved]

NARRATIVE: CASE EVENT DATE: 20141205
